FAERS Safety Report 18376083 (Version 1)
Quarter: 2020Q4

REPORT INFORMATION
  Report Type: Spontaneous
  Country: US (occurrence: US)
  Receive Date: 20201010
  Receipt Date: 20201010
  Transmission Date: 20210114
  Serious: No
  Sender: FDA-Public Use
  Company Number: None

PATIENT
  Age: 44 Year
  Sex: Female
  Weight: 74.25 kg

DRUGS (3)
  1. SYNTHROID (BRAND) [Concomitant]
  2. CLARITIN [Concomitant]
     Active Substance: LORATADINE
  3. NP THYROID [Suspect]
     Active Substance: LEVOTHYROXINE\LIOTHYRONINE
     Indication: HYPOTHYROIDISM
     Dosage: ?          QUANTITY:1 TABLET(S);?
     Route: 048

REACTIONS (4)
  - Alopecia [None]
  - Hypothyroidism [None]
  - Fatigue [None]
  - Condition aggravated [None]

NARRATIVE: CASE EVENT DATE: 20200812
